FAERS Safety Report 6015949-6 (Version None)
Quarter: 2008Q4

REPORT INFORMATION
  Report Type: 
  Country: None (occurrence: None)
  Receive Date: 20081218
  Receipt Date: 20081201
  Transmission Date: 20090506
  Serious: Yes (Other)
  Sender: FDA-Public Use
  Company Number: 8040240

PATIENT
  Age: 65 Year
  Sex: Female

DRUGS (13)
  1. KEPPRA [Suspect]
  2. ASCORBIC ACID [Concomitant]
  3. ASPIRIN [Concomitant]
  4. CENTRUM [Concomitant]
  5. COLOXYL WITH SENNA [Concomitant]
  6. ESOMEPRAZOLE MAGNESIUM THIYDRATE [Concomitant]
  7. FERRO-GRADUMET [Concomitant]
  8. LACTULOSE [Concomitant]
  9. MAGNESIUM ASPARTATE [Concomitant]
  10. PARACETAMOL [Concomitant]
  11. ROSUVASTATIN [Concomitant]
  12. SPIRONOLACTONE [Concomitant]
  13. LEVOTHYROXINE SODIUM [Concomitant]

REACTIONS (2)
  - NEUTROPENIA [None]
  - THROMBOCYTOPENIA [None]
